FAERS Safety Report 5482384-9 (Version None)
Quarter: 2007Q4

REPORT INFORMATION
  Report Type: 
  Country: None (occurrence: None)
  Receive Date: 20071011
  Receipt Date: 20071005
  Transmission Date: 20080405
  Serious: Yes (Hospitalization)
  Sender: FDA-Public Use
  Company Number: B0385708A

PATIENT
  Age: 73 Year
  Sex: Male

DRUGS (13)
  1. ZELITREX [Suspect]
     Route: 048
     Dates: start: 20050428, end: 20050502
  2. CIFLOX [Suspect]
     Indication: PROSTATITIS
     Dosage: 1000MG PER DAY
     Route: 048
     Dates: start: 20050429, end: 20050505
  3. OROKEN [Suspect]
     Indication: PROSTATITIS
     Route: 048
     Dates: start: 20050429, end: 20050505
  4. AVODART [Concomitant]
     Indication: BENIGN PROSTATIC HYPERPLASIA
     Route: 048
     Dates: start: 20050504
  5. XATRAL [Concomitant]
     Indication: BENIGN PROSTATIC HYPERPLASIA
     Dates: start: 20050504
  6. URINARY CATHETERISATION [Concomitant]
     Indication: BENIGN PROSTATIC HYPERPLASIA
  7. HYDRATION [Concomitant]
  8. HYTACAND [Concomitant]
  9. BUFLOMEDIL [Concomitant]
  10. PRAVASTATIN [Concomitant]
  11. ALLOPURINOL [Concomitant]
  12. PREVISCAN [Concomitant]
     Dates: start: 20050428
  13. SERESTA [Concomitant]

REACTIONS (1)
  - VASCULAR PURPURA [None]
